FAERS Safety Report 7875811-0 (Version None)
Quarter: 2011Q4

REPORT INFORMATION
  Report Type: 
  Country: None (occurrence: None)
  Receive Date: 20111031
  Receipt Date: 20111017
  Transmission Date: 20120403
  Serious: Yes (Other)
  Sender: FDA-Public Use
  Company Number: PHHY2011JP88400

PATIENT
  Age: 9 Year
  Sex: Female

DRUGS (6)
  1. CYCLOSPORINE [Suspect]
     Indication: LIVER TRANSPLANT
     Dosage: 3 MG/KG/DAY
  2. METHYLPREDNISOLONE [Concomitant]
     Indication: LIVER TRANSPLANT
     Dosage: 3 MG/KG DAILY
  3. MYCOPHENOLATE MOFETIL [Concomitant]
     Dosage: 1.5 MG/ DAY
  4. CYCLOSPORINE [Suspect]
     Dosage: 20 MG/KG/DAY
  5. FLUCONAZOLE [Concomitant]
     Dosage: 3 MG/ DAY
  6. CYCLOSPORINE [Suspect]
     Dosage: 10 MG/KG/DAY

REACTIONS (2)
  - DIABETES MELLITUS [None]
  - LIVER TRANSPLANT REJECTION [None]
